FAERS Safety Report 22245273 (Version 2)
Quarter: 2023Q2

REPORT INFORMATION
  Report Type: Spontaneous
  Country: PT (occurrence: PT)
  Receive Date: 20230424
  Receipt Date: 20230512
  Transmission Date: 20230722
  Serious: Yes (Other)
  Sender: FDA-Public Use
  Company Number: PT-ROCHE-3328915

PATIENT
  Sex: Female

DRUGS (3)
  1. DOCETAXEL [Suspect]
     Active Substance: DOCETAXEL
     Indication: Metaplastic breast carcinoma
     Dosage: UNK
     Route: 065
  2. TRASTUZUMAB [Suspect]
     Active Substance: TRASTUZUMAB
     Indication: Metaplastic breast carcinoma
     Dosage: UNK
     Route: 065
  3. PERTUZUMAB [Suspect]
     Active Substance: PERTUZUMAB
     Indication: Metaplastic breast carcinoma
     Dosage: UNK
     Route: 065

REACTIONS (2)
  - Metastasis [Unknown]
  - Disease progression [Unknown]
